FAERS Safety Report 5456603-9 (Version None)
Quarter: 2007Q3

REPORT INFORMATION
  Report Type: 
  Country: None (occurrence: None)
  Receive Date: 20070917
  Receipt Date: 20070917
  Transmission Date: 20080115
  Serious: Yes (Hospitalization)
  Sender: FDA-Public Use
  Company Number: None

PATIENT
  Age: 70 Year
  Sex: Male

DRUGS (1)
  1. ANAGRELIDE HCL [Suspect]
     Indication: THROMBOCYTHAEMIA
     Dosage: 2MG BID PO
     Route: 048
     Dates: start: 20070313

REACTIONS (4)
  - DIZZINESS [None]
  - DYSPNOEA [None]
  - HEADACHE [None]
  - PRESYNCOPE [None]
